FAERS Safety Report 5612146-0 (Version None)
Quarter: 2008Q1

REPORT INFORMATION
  Report Type: 
  Country: None (occurrence: None)
  Receive Date: 20080128
  Receipt Date: 20080114
  Transmission Date: 20080703
  Serious: Yes (Other)
  Sender: FDA-Public Use
  Company Number: 2008EU000132

PATIENT
  Age: 64 Year
  Sex: Male

DRUGS (5)
  1. VESICARE [Suspect]
     Indication: PROSTATISM
     Dosage: 5 MG, UNKNOWN/D
     Dates: start: 20060601
  2. CIALIS [Suspect]
     Indication: PROSTATISM
     Dosage: UNKNOWN/D ORAL
     Route: 048
     Dates: start: 20060101
  3. XATRAL (ALFUZOSIN) SLOW RELEASE TABLET [Suspect]
     Indication: PROSTATISM
     Dosage: 10 MG, UNKNOWN/D, ORAL
     Route: 048
     Dates: start: 20060601
  4. TIPRAOL (TRAMADOL HYDROCHLORIDE) CAPSULE [Suspect]
     Indication: PROSTATISM
     Dosage: 100 MG, UNKNOWN/D, ORAL
     Route: 048
     Dates: start: 20060601
  5. VIAGRA [Suspect]
     Indication: PROSTATISM
     Dosage: ORAL
     Route: 048
     Dates: start: 20050101

REACTIONS (1)
  - GLAUCOMA [None]
